FAERS Safety Report 5235820-7 (Version None)
Quarter: 2007Q1

REPORT INFORMATION
  Report Type: 
  Country: None (occurrence: None)
  Receive Date: 20061208
  Receipt Date: 20060731
  Transmission Date: 20070707
  Serious: Yes (Other)
  Sender: FDA-Public Use
  Company Number: 2006UW13092

PATIENT
  Age: 43 Year
  Sex: Female
  Weight: 99.79 kg

DRUGS (13)
  1. CRESTOR [Suspect]
     Indication: BLOOD CHOLESTEROL INCREASED
     Dosage: 10 MG QD PO
     Route: 048
     Dates: start: 20060619
  2. BYETTA [Concomitant]
  3. METFORMIN HCL [Concomitant]
  4. NEXIUM ORAL [Concomitant]
  5. FOLGARD [Concomitant]
  6. AVANDIA [Concomitant]
  7. HYZAAR [Concomitant]
  8. CLARITIN [Concomitant]
  9. SINGULAIR [Concomitant]
  10. GLIPIZIDE [Concomitant]
  11. COREG [Concomitant]
  12. ASPIRIN [Concomitant]
  13. NIASPAN [Concomitant]

REACTIONS (1)
  - RENAL PAIN [None]
